FAERS Safety Report 8003559-0 (Version None)
Quarter: 2011Q4

REPORT INFORMATION
  Report Type: 
  Country: None (occurrence: None)
  Receive Date: 20111222
  Receipt Date: 20111213
  Transmission Date: 20120403
  Serious: Yes (Other)
  Sender: FDA-Public Use
  Company Number: CN-ASTRAZENECA-2011SE75201

PATIENT
  Sex: Female

DRUGS (4)
  1. NITROUS OXIDE [Suspect]
     Indication: ANAESTHESIA
     Route: 065
  2. LIDOCAINE [Suspect]
     Indication: ANAESTHESIA
     Route: 042
  3. PROPOFOL [Suspect]
     Indication: ANAESTHESIA
     Route: 042
  4. PROPOFOL [Suspect]
     Dosage: 0.5-1 MG/KG
     Route: 042

REACTIONS (7)
  - MONOPARESIS [None]
  - PROCEDURAL VOMITING [None]
  - BRADYCARDIA [None]
  - RESTLESSNESS [None]
  - PROCEDURAL DIZZINESS [None]
  - RESPIRATORY DEPRESSION [None]
  - PROCEDURAL NAUSEA [None]
